FAERS Safety Report 17076720 (Version 2)
Quarter: 2019Q4

REPORT INFORMATION
  Report Type: Spontaneous
  Country: FR (occurrence: FR)
  Receive Date: 20191126
  Receipt Date: 20191203
  Transmission Date: 20200122
  Serious: Yes (Hospitalization, Other)
  Sender: FDA-Public Use
  Company Number: FR-INDIVIOR US-INDV-122485-2019

PATIENT
  Age: 48 Year
  Sex: Male

DRUGS (7)
  1. SERESTA [Suspect]
     Active Substance: OXAZEPAM
     Indication: PRODUCT USED FOR UNKNOWN INDICATION
     Dosage: UNK
     Route: 065
     Dates: start: 2004
  2. ALCOHOL. [Suspect]
     Active Substance: ALCOHOL
     Indication: ALCOHOL USE
     Dosage: 41 U OF BEER PER DAY
     Route: 048
     Dates: start: 1986
  3. NICOTIANA TABACUM [Suspect]
     Active Substance: TOBACCO LEAF
     Indication: TOBACCO USER
     Dosage: 20 PACKETS PER YEAR
     Route: 055
     Dates: start: 1986
  4. SUBUTEX [Suspect]
     Active Substance: BUPRENORPHINE HYDROCHLORIDE
     Indication: PRODUCT USED FOR UNKNOWN INDICATION
     Dosage: UNK
     Route: 042
     Dates: start: 2009, end: 2010
  5. SERESTA [Suspect]
     Active Substance: OXAZEPAM
     Dosage: 50 MILLIGRAM, TID (50 MG IN THE MORNING, AT NOON AND IN THE EVENING)
     Route: 065
  6. LYSERGIDE [Suspect]
     Active Substance: LYSERGIDE
     Indication: DRUG ABUSE
     Dosage: UNK
     Route: 065
     Dates: end: 2015
  7. LITHIUM. [Suspect]
     Active Substance: LITHIUM
     Indication: PRODUCT USED FOR UNKNOWN INDICATION
     Dosage: UNK
     Route: 065
     Dates: start: 2004

REACTIONS (8)
  - Alcohol abuse [Recovering/Resolving]
  - Toxicity to various agents [Recovered/Resolved]
  - Drug dependence [Recovering/Resolving]
  - Intentional product misuse [Recovering/Resolving]
  - Drug dependence [Recovering/Resolving]
  - Drug dependence [Recovered/Resolved]
  - Drug dependence [Recovered/Resolved]
  - Intentional product use issue [Recovered/Resolved]

NARRATIVE: CASE EVENT DATE: 1986
